FAERS Safety Report 17028067 (Version 1)
Quarter: 2019Q4

REPORT INFORMATION
  Report Type: Spontaneous
  Country: US (occurrence: US)
  Receive Date: 20191113
  Receipt Date: 20191113
  Transmission Date: 20200122
  Serious: Yes (Death, Hospitalization, Other)
  Sender: FDA-Public Use
  Company Number: NVSC2019US032684

PATIENT
  Sex: Female

DRUGS (2)
  1. TASIGNA [Suspect]
     Active Substance: NILOTINIB
     Indication: CHRONIC MYELOID LEUKAEMIA
     Dosage: UNK
     Route: 065
  2. BOSULIF [Suspect]
     Active Substance: BOSUTINIB MONOHYDRATE
     Indication: CHRONIC MYELOID LEUKAEMIA
     Dosage: 300 MG
     Route: 065
     Dates: start: 201810, end: 20190122

REACTIONS (13)
  - Fatigue [Unknown]
  - Malignant neoplasm progression [Fatal]
  - Respiratory tract infection [Unknown]
  - Diarrhoea [Unknown]
  - Melaena [Unknown]
  - Drug intolerance [Unknown]
  - Gastritis [Unknown]
  - Malaise [Unknown]
  - Gastrointestinal haemorrhage [Unknown]
  - Asthenia [Unknown]
  - Chronic myeloid leukaemia [Fatal]
  - Anaemia [Unknown]
  - Abdominal discomfort [Unknown]

NARRATIVE: CASE EVENT DATE: 201901
